FAERS Safety Report 7401007-2 (Version None)
Quarter: 2011Q1

REPORT INFORMATION
  Report Type: 
  Country: None (occurrence: None)
  Receive Date: 20110329
  Receipt Date: 20110315
  Transmission Date: 20110831
  Serious: Yes (Hospitalization, Other)
  Sender: FDA-Public Use
  Company Number: JHP201100061

PATIENT
  Age: 34 Year
  Sex: Female

DRUGS (2)
  1. METHYLERGONOVINE () [Suspect]
     Indication: UTERINE ATONY
     Dosage: SINGLE DOSE
  2. PITOCIN [Suspect]
     Indication: UTERINE ATONY
     Dosage: 40 UNITS

REACTIONS (8)
  - SCOTOMA [None]
  - SUBARACHNOID HAEMORRHAGE [None]
  - REFUSAL OF TREATMENT BY PATIENT [None]
  - HAEMATOCRIT INCREASED [None]
  - BLOOD CREATININE INCREASED [None]
  - VASCULITIS CEREBRAL [None]
  - BLOOD PRESSURE INCREASED [None]
  - DRUG EXPOSURE DURING PREGNANCY [None]
